FAERS Safety Report 9961181 (Version 2)
Quarter: 2014Q1

REPORT INFORMATION
  Report Type: Spontaneous
  Country: US (occurrence: US)
  Receive Date: 20140305
  Receipt Date: 20140320
  Transmission Date: 20141002
  Serious: Yes (Hospitalization)
  Sender: FDA-Public Use
  Company Number: US-MERCK-1403USA000297

PATIENT
  Sex: 0

DRUGS (1)
  1. NOXAFIL [Suspect]
     Dosage: SUSTAINED ACTION, 1ST OR 2ND DAY OF TREATMENT
     Route: 048

REACTIONS (1)
  - Overdose [Unknown]
